FAERS Safety Report 23586737 (Version 3)
Quarter: 2024Q3

REPORT INFORMATION
  Report Type: Spontaneous
  Country: US (occurrence: US)
  Receive Date: 20240301
  Receipt Date: 20240918
  Transmission Date: 20241016
  Serious: Yes (Hospitalization, Other)
  Sender: PFIZER
  Company Number: US-PFIZER INC-202400053533

PATIENT
  Age: 82 Year
  Sex: Female
  Weight: 51.701 kg

DRUGS (1)
  1. XELJANZ XR [Suspect]
     Active Substance: TOFACITINIB CITRATE
     Indication: Rheumatic disorder
     Dosage: 11 MG, 1X/DAY
     Route: 048

REACTIONS (3)
  - Sinus disorder [Unknown]
  - Sinus congestion [Unknown]
  - Sinusitis [Recovering/Resolving]
